FAERS Safety Report 8396842-0 (Version None)
Quarter: 2012Q1

REPORT INFORMATION
  Report Type: 
  Country: None (occurrence: None)
  Receive Date: 20120323
  Receipt Date: 20110315
  Transmission Date: 20120608
  Serious: Yes (Hospitalization)
  Sender: FDA-Public Use
  Company Number: 163-21880-11031909

PATIENT
  Age: 88 Year
  Sex: Male

DRUGS (6)
  1. REVLIMID [Suspect]
     Indication: MULTIPLE MYELOMA
     Dosage: 10 MG, 1 IN 1 D, PO
     Route: 048
     Dates: start: 20090701, end: 20090101
  2. HUMALOG (INSULIN LISPRO) (UNKNOWN) [Concomitant]
  3. LASIX (FUROSEMIDE) (UNNKOWN) [Concomitant]
  4. PROTONIX (PANTOPRAZOLE) (UNKNOWN) [Concomitant]
  5. FLOMAX (TAMSULOSIN HYDROCHLORIDE) (UNKNOWN) [Concomitant]
  6. ZOCOR (SIMVASTATIN) (UNKNOWN) [Concomitant]

REACTIONS (4)
  - DYSPNOEA [None]
  - CONFUSIONAL STATE [None]
  - RED BLOOD CELL COUNT DECREASED [None]
  - HAEMATOCRIT DECREASED [None]
